FAERS Safety Report 9606159 (Version 2)
Quarter: 2014Q2

REPORT INFORMATION
  Report Type: Spontaneous
  Country: US (occurrence: US)
  Receive Date: 20131008
  Receipt Date: 20140519
  Transmission Date: 20141212
  Serious: No
  Sender: FDA-Public Use
  Company Number: US-AMGEN-USASP2013043620

PATIENT
  Age: 57 Year
  Sex: Female
  Weight: 79.82 kg

DRUGS (6)
  1. PROLIA [Suspect]
     Indication: OSTEOPOROSIS POSTMENOPAUSAL
     Dosage: 60 MG, Q6MO
     Route: 058
     Dates: start: 20121010
  2. PROLIA [Suspect]
     Dosage: UNK
     Route: 058
  3. CLIMARA [Concomitant]
     Dosage: 0.5 MG, QWK
     Route: 065
  4. ERGOCALCIFEROL [Concomitant]
     Indication: VITAMIN D DEFICIENCY
     Dosage: 50000 IU, 3 TIMES/WK
     Route: 048
  5. CALTRATE                           /00944201/ [Concomitant]
     Indication: OSTEOPOROSIS
     Dosage: 1200 MG, QD
     Route: 048
  6. ESTRACE [Concomitant]
     Dosage: 0.1 MG, QD
     Route: 048

REACTIONS (3)
  - Breast swelling [Recovered/Resolved]
  - Breast tenderness [Unknown]
  - Peripheral swelling [Recovered/Resolved]
